FAERS Safety Report 4402145-9 (Version None)
Quarter: 2004Q3

REPORT INFORMATION
  Report Type: 
  Country: None (occurrence: None)
  Receive Date: 20040715
  Receipt Date: 20040706
  Transmission Date: 20050211
  Serious: Yes (Death, Disabling)
  Sender: FDA-Public Use
  Company Number: HQWYE334002APR04

PATIENT
  Age: 77 Year
  Sex: Male

DRUGS (8)
  1. TAZOCIN (PIPEARCILLIN/TAZOBACTAM, INJECTION) [Suspect]
     Indication: PNEUMONIA ASPIRATION
     Dosage: 2.5 GRAMS DAILY, INTRAVENOUS DRIP
     Route: 041
     Dates: start: 20020914, end: 20020924
  2. TAZOCIN (PIPEARCILLIN/TAZOBACTAM, INJECTION) [Suspect]
     Indication: SEPSIS
     Dosage: 2.5 GRAMS DAILY, INTRAVENOUS DRIP
     Route: 041
     Dates: start: 20020914, end: 20020924
  3. SIGMART (NICORANDIL) [Concomitant]
  4. LASIX [Concomitant]
  5. NORVASC [Concomitant]
  6. DIFLUCAN [Concomitant]
  7. VEEN D (CALCIUM CHLORIDE DIHYDRATE/GLUCOSE/POTASSIUM CHLORIDE/SODIUM A [Concomitant]
  8. MAGNESIUM OXIDE (MAGNESIUM OXIDE) [Concomitant]

REACTIONS (7)
  - ASPARTATE AMINOTRANSFERASE INCREASED [None]
  - BLOOD ALKALINE PHOSPHATASE INCREASED [None]
  - CONDITION AGGRAVATED [None]
  - GAMMA-GLUTAMYLTRANSFERASE INCREASED [None]
  - HEPATIC FUNCTION ABNORMAL [None]
  - LIVER DISORDER [None]
  - MULTI-ORGAN FAILURE [None]
